FAERS Safety Report 20811693 (Version 2)
Quarter: 2022Q2

REPORT INFORMATION
  Report Type: Report from Study
  Country: US (occurrence: US)
  Receive Date: 20220510
  Receipt Date: 20220520
  Transmission Date: 20220721
  Serious: No
  Sender: FDA-Public Use
  Company Number: US-BIOVITRUM-2021US7314

PATIENT
  Age: 40 Year
  Sex: Female

DRUGS (1)
  1. KINERET [Suspect]
     Active Substance: ANAKINRA
     Indication: Still^s disease
     Route: 058
     Dates: start: 20190406

REACTIONS (13)
  - Osteochondritis [Unknown]
  - Anaemia [Unknown]
  - Inflammatory marker increased [Unknown]
  - Illness [Unknown]
  - Migraine [Unknown]
  - COVID-19 [Unknown]
  - Infection [Unknown]
  - Immune system disorder [Unknown]
  - Pyrexia [Unknown]
  - Hyperhidrosis [Unknown]
  - Rash [Unknown]
  - Product dose omission issue [Unknown]
  - Off label use [Not Recovered/Not Resolved]

NARRATIVE: CASE EVENT DATE: 20190406
